FAERS Safety Report 8520362-3 (Version None)
Quarter: 2012Q3

REPORT INFORMATION
  Report Type: 
  Country: None (occurrence: None)
  Receive Date: 20120713
  Receipt Date: 20120713
  Transmission Date: 20120928
  Serious: Yes (Hospitalization)
  Sender: FDA-Public Use
  Company Number: None

PATIENT
  Age: 70 Year
  Sex: Male
  Weight: 64.8 kg

DRUGS (2)
  1. PACLITAXEL [Suspect]
     Indication: OESOPHAGEAL SQUAMOUS CELL CARCINOMA
     Dosage: 372 MG ONCE IV
     Route: 042
     Dates: start: 20120130, end: 20120130
  2. CARBOPLATIN [Suspect]
     Dosage: 465 MG ONCE IV
     Route: 042
     Dates: start: 20120130, end: 20120130

REACTIONS (1)
  - FEBRILE NEUTROPENIA [None]
